FAERS Safety Report 16031842 (Version 3)
Quarter: 2019Q2

REPORT INFORMATION
  Report Type: Spontaneous
  Country: US (occurrence: US)
  Receive Date: 20190304
  Receipt Date: 20190610
  Transmission Date: 20190711
  Serious: No
  Sender: FDA-Public Use
  Company Number: US-ACTELION-A-US2019-186256

PATIENT
  Age: 63 Year
  Sex: Female

DRUGS (1)
  1. OPSUMIT [Suspect]
     Active Substance: MACITENTAN
     Indication: PULMONARY ARTERIAL HYPERTENSION
     Dosage: 10 MG, QD
     Route: 048
     Dates: start: 20190114

REACTIONS (5)
  - Anxiety [Unknown]
  - Pulmonary hypertension [Unknown]
  - Hypertension [Unknown]
  - Stress [Unknown]
  - Candida infection [Unknown]

NARRATIVE: CASE EVENT DATE: 20190509
